FAERS Safety Report 24602645 (Version 1)
Quarter: 2024Q4

REPORT INFORMATION
  Report Type: Spontaneous
  Country: CN (occurrence: CN)
  Receive Date: 20241111
  Receipt Date: 20241111
  Transmission Date: 20250115
  Serious: Yes (Hospitalization, Other)
  Sender: BAXTER
  Company Number: None

PATIENT
  Age: 73 Year
  Sex: Male

DRUGS (5)
  1. CYCLOPHOSPHAMIDE [Suspect]
     Active Substance: CYCLOPHOSPHAMIDE
     Indication: Follicular lymphoma
     Dosage: 1 G, ONE TIME IN ONE DAY, D1, THIRD CYCLE OF G-CHOP REGIMEN CHEMOTHERAPY
     Route: 042
     Dates: start: 20240418, end: 20240418
  2. OBINUTUZUMAB [Suspect]
     Active Substance: OBINUTUZUMAB
     Indication: Follicular lymphoma
     Dosage: 1 G, ONE TIME IN ONE DAY, D0, THIRD CYCLE OF G-CHOP REGIMEN CHEMOTHERAPY
     Route: 041
     Dates: start: 20240417, end: 20240417
  3. VINDESINE SULFATE [Suspect]
     Active Substance: VINDESINE SULFATE
     Indication: Follicular lymphoma
     Dosage: 4 MG, ONE TIME IN ONE DAY, D1, THIRD CYCLE OF G-CHOP REGIMEN CHEMOTHERAPY
     Route: 041
     Dates: start: 20240418, end: 20240418
  4. DOXORUBICIN HYDROCHLORIDE [Suspect]
     Active Substance: DOXORUBICIN HYDROCHLORIDE
     Indication: Follicular lymphoma
     Dosage: 40 MG, ONE TIME IN ONE DAY, D1, THIRD CYCLE OF G-CHOP REGIMEN CHEMOTHERAPY
     Route: 041
     Dates: start: 20240418, end: 20240418
  5. PREDNISONE ACETATE [Suspect]
     Active Substance: PREDNISONE ACETATE
     Indication: Follicular lymphoma
     Dosage: 50 MG, TWO TIMES IN ONE DAY, THIRD CYCLE OF G-CHOP REGIMEN CHEMOTHERAPY, D1-5
     Route: 048
     Dates: start: 20240418, end: 20240422

REACTIONS (9)
  - Hydrothorax [Unknown]
  - Septic shock [Recovering/Resolving]
  - Pyrexia [Recovered/Resolved]
  - Temperature intolerance [Unknown]
  - Pneumonitis [Unknown]
  - Granulocytosis [Unknown]
  - Bacterial infection [Unknown]
  - Staphylococcal infection [Unknown]
  - Pleural effusion [Unknown]

NARRATIVE: CASE EVENT DATE: 20240423
